FAERS Safety Report 5485016-9 (Version None)
Quarter: 2007Q4

REPORT INFORMATION
  Report Type: 
  Country: None (occurrence: None)
  Receive Date: 20071015
  Receipt Date: 20071008
  Transmission Date: 20080405
  Serious: Yes (Other)
  Sender: FDA-Public Use
  Company Number: PHEH2006US02521

PATIENT
  Age: 47 Year
  Sex: Female
  Weight: 70.748 kg

DRUGS (5)
  1. AREDIA [Suspect]
  2. ZOMETA [Suspect]
     Indication: METASTASES TO BONE
  3. DOCETAXEL [Concomitant]
  4. TRASTUZUMAB [Concomitant]
  5. ANASTROZOLE [Concomitant]

REACTIONS (7)
  - EMOTIONAL DISTRESS [None]
  - GAMMA RADIATION THERAPY TO BRAIN [None]
  - INJURY [None]
  - METASTASIS [None]
  - OSTEONECROSIS [None]
  - PAIN [None]
  - PAIN IN JAW [None]
